FAERS Safety Report 8515799 (Version 2)
Quarter: 2013Q3

REPORT INFORMATION
  Report Type: Spontaneous
  Country: US (occurrence: US)
  Receive Date: 20120417
  Receipt Date: 20130902
  Transmission Date: 20140515
  Serious: Yes (Hospitalization, Other)
  Sender: FDA-Public Use
  Company Number: US-ROCHE-793957

PATIENT
  Sex: Male
  Weight: 95.34 kg

DRUGS (1)
  1. ACCUTANE [Suspect]
     Indication: ACNE
     Route: 065
     Dates: start: 19930419, end: 19950529

REACTIONS (6)
  - Inflammatory bowel disease [Unknown]
  - Crohn^s disease [Unknown]
  - Colitis ulcerative [Unknown]
  - Anaemia [Unknown]
  - Arthritis [Unknown]
  - Depression [Unknown]
